FAERS Safety Report 6550985-2 (Version None)
Quarter: 2010Q1

REPORT INFORMATION
  Report Type: 
  Country: None (occurrence: None)
  Receive Date: 20100122
  Receipt Date: 20100122
  Transmission Date: 20100710
  Serious: Yes (Death)
  Sender: FDA-Public Use
  Company Number: None

PATIENT
  Sex: Male
  Weight: 74.8435 kg

DRUGS (2)
  1. PLAVIX [Suspect]
     Indication: CORONARY ARTERY DISEASE
     Dosage: 75MG ONCE DAILY PO
     Route: 048
     Dates: start: 20081022, end: 20091004
  2. ASPIRIN [Suspect]
     Indication: CORONARY ARTERY DISEASE
     Dosage: 81 MG ONCE DAILY PO
     Route: 048
     Dates: start: 20081022, end: 20091004

REACTIONS (1)
  - HAEMORRHAGE INTRACRANIAL [None]
